FAERS Safety Report 13173355 (Version 1)
Quarter: 2017Q1

REPORT INFORMATION
  Report Type: Spontaneous
  Country: US (occurrence: US)
  Receive Date: 20170131
  Receipt Date: 20170131
  Transmission Date: 20170428
  Serious: No
  Sender: FDA-Public Use
  Company Number: None

PATIENT
  Age: 59 Year
  Sex: Female
  Weight: 54 kg

DRUGS (6)
  1. RELPAX [Concomitant]
     Active Substance: ELETRIPTAN HYDROBROMIDE
  2. BUPROPION. [Concomitant]
     Active Substance: BUPROPION
  3. ONE-A-DAY VITAMIN [Concomitant]
  4. TOPAMAX [Concomitant]
     Active Substance: TOPIRAMATE
  5. BUPROPION HYDROCHLORIDE XL [Suspect]
     Active Substance: BUPROPION HYDROCHLORIDE
     Indication: DEPRESSION
     Dosage: ?          QUANTITY:90 TABLET(S);?
     Route: 048
     Dates: start: 20170123, end: 20170130
  6. BUPROPION HYDROCHLORIDE XL [Suspect]
     Active Substance: BUPROPION HYDROCHLORIDE
     Indication: ANXIETY
     Dosage: ?          QUANTITY:90 TABLET(S);?
     Route: 048
     Dates: start: 20170123, end: 20170130

REACTIONS (12)
  - Abnormal behaviour [None]
  - Nervousness [None]
  - Anxiety [None]
  - Product substitution issue [None]
  - Dyspnoea [None]
  - Paranoia [None]
  - Depression [None]
  - Crying [None]
  - Tremor [None]
  - Disturbance in attention [None]
  - Lethargy [None]
  - Mood altered [None]

NARRATIVE: CASE EVENT DATE: 20170123
